FAERS Safety Report 7815862-5 (Version None)
Quarter: 2011Q4

REPORT INFORMATION
  Report Type: 
  Country: None (occurrence: None)
  Receive Date: 20111014
  Receipt Date: 20111009
  Transmission Date: 20120403
  Serious: Yes (Other)
  Sender: FDA-Public Use
  Company Number: US-SANOFI-AVENTIS-2011SA066424

PATIENT
  Age: 51 Year
  Sex: Male

DRUGS (4)
  1. LANTUS [Suspect]
     Dosage: OVER A 100 UNITS TWICE A DAY
     Route: 058
     Dates: start: 20020101
  2. LANTUS [Suspect]
     Indication: TYPE 2 DIABETES MELLITUS
     Dosage: DOSE:90 UNIT(S)
     Route: 058
  3. BYETTA [Suspect]
     Route: 065
  4. NOVOLOG [Concomitant]

REACTIONS (8)
  - GLAUCOMA [None]
  - EXPIRED DRUG ADMINISTERED [None]
  - BLOOD GLUCOSE INCREASED [None]
  - INJECTION SITE PAIN [None]
  - CEREBROVASCULAR ACCIDENT [None]
  - EYE DISORDER [None]
  - MALAISE [None]
  - GLYCOSYLATED HAEMOGLOBIN INCREASED [None]
